FAERS Safety Report 9660328 (Version 2)
Quarter: 2013Q4

REPORT INFORMATION
  Report Type: Spontaneous
  Country: US (occurrence: US)
  Receive Date: 20131031
  Receipt Date: 20131031
  Transmission Date: 20140711
  Serious: Yes (Death, Other)
  Sender: FDA-Public Use
  Company Number: US-NAPPMUNDI-USA-2011-0069253

PATIENT
  Age: 25 Year
  Sex: Male

DRUGS (5)
  1. OXYCONTIN TABLETS [Suspect]
     Indication: DRUG ABUSE
     Dosage: UNK
     Dates: start: 20071203
  2. FENTANYL [Suspect]
     Indication: DRUG ABUSE
     Dosage: UNK
  3. COCAINE [Suspect]
     Indication: DRUG ABUSE
     Dosage: UNK
  4. BENZODIAZEPINE DERIVATIVES [Suspect]
     Indication: DRUG ABUSE
  5. DARVON /00018802/ [Suspect]
     Indication: DRUG ABUSE

REACTIONS (2)
  - Substance abuse [Fatal]
  - Polysubstance dependence [Unknown]
